FAERS Safety Report 4448286-1 (Version None)
Quarter: 2004Q3

REPORT INFORMATION
  Report Type: 
  Country: None (occurrence: None)
  Receive Date: 20040910
  Receipt Date: 20040827
  Transmission Date: 20050211
  Serious: Yes (Death)
  Sender: FDA-Public Use
  Company Number: 2004S1002225

PATIENT
  Age: 27 Year
  Sex: Male
  Weight: 73.4827 kg

DRUGS (9)
  1. CLOZAPINE [Suspect]
     Indication: INTERMITTENT EXPLOSIVE DISORDER
     Dosage: 50MG, BID, ORAL
     Route: 048
     Dates: start: 20001201
  2. CLOZAPINE [Suspect]
     Indication: SCHIZOPHRENIA
     Dosage: 50MG, BID, ORAL
     Route: 048
     Dates: start: 20001201
  3. CLOZAPINE [Suspect]
     Indication: INTERMITTENT EXPLOSIVE DISORDER
     Dosage: 100MG Q HS, ORAL
     Route: 048
     Dates: start: 20001201
  4. CLOZAPINE [Suspect]
     Indication: SCHIZOPHRENIA
     Dosage: 100MG Q HS, ORAL
     Route: 048
     Dates: start: 20001201
  5. LAMOTRIGINE [Concomitant]
  6. BENZTROPINE MESYLATE [Concomitant]
  7. MIRTAZAPINE [Concomitant]
  8. OMEPRAZOLE [Concomitant]
  9. LORATADINE [Concomitant]

REACTIONS (2)
  - COMPLETED SUICIDE [None]
  - DROWNING [None]
